FAERS Safety Report 13986703 (Version 2)
Quarter: 2017Q4

REPORT INFORMATION
  Report Type: Spontaneous
  Country: US (occurrence: US)
  Receive Date: 20170919
  Receipt Date: 20171019
  Transmission Date: 20180321
  Serious: No
  Sender: FDA-Public Use
  Company Number: US-GLAXOSMITHKLINE-US2017GSK144506

PATIENT
  Sex: Female
  Weight: 69.9 kg

DRUGS (1)
  1. NUCALA [Suspect]
     Active Substance: MEPOLIZUMAB
     Indication: ASTHMA
     Dosage: UNK
     Route: 058
     Dates: start: 20170508, end: 20170802

REACTIONS (3)
  - Pain in extremity [Unknown]
  - Neck pain [Unknown]
  - Musculoskeletal pain [Unknown]

NARRATIVE: CASE EVENT DATE: 2017
